FAERS Safety Report 8008576-2 (Version None)
Quarter: 2011Q4

REPORT INFORMATION
  Report Type: 
  Country: None (occurrence: None)
  Receive Date: 20111227
  Receipt Date: 20111213
  Transmission Date: 20120403
  Serious: Yes (Death)
  Sender: FDA-Public Use
  Company Number: US-CELGENEUS-163-21880-11112170

PATIENT
  Sex: Female

DRUGS (25)
  1. REVLIMID [Suspect]
     Dosage: 15 MILLIGRAM
     Route: 048
     Dates: start: 20101101, end: 20110401
  2. GABAPENTIN [Concomitant]
     Dosage: 300 MILLIGRAM
     Route: 065
  3. LORATADINE [Concomitant]
     Dosage: 10 MILLIGRAM
     Route: 065
  4. MEGESTROL ACETATE [Concomitant]
     Dosage: 4 MILLIGRAM/MILLILITERS
     Route: 065
  5. ALBUTEROL SULFATE [Concomitant]
     Dosage: .5 PERCENT
     Route: 065
  6. BENZONATATE [Concomitant]
     Dosage: 100 MILLIGRAM
     Route: 065
  7. BISMUTH SUBSALICYLATE IN OIL INJ [Concomitant]
     Dosage: 262 MILLIGRAM
     Route: 065
  8. DILTIAZEM HCL [Concomitant]
     Dosage: 360 MILLIGRAM
     Route: 065
  9. FLUCONAZOLE [Concomitant]
     Dosage: 200 MILLIGRAM
     Route: 065
  10. LACTOBACILLUS ACIDOPHILUS [Concomitant]
     Dosage: 200 MILLIGRAM
     Route: 065
  11. MEGACE [Concomitant]
     Route: 065
  12. ATOVAQUONE [Concomitant]
     Dosage: 5 MILLILITER
     Route: 065
  13. CHOLECALCIFEROL [Concomitant]
     Dosage: 1000 IU (INTERNATIONAL UNIT)
     Route: 065
  14. LEVOFLOXACIN [Concomitant]
     Dosage: 750 MILLIGRAM
     Route: 065
  15. LOPERAMIDE HCL [Concomitant]
     Route: 065
  16. VALACYCLOVIR HYDROCHLORIDE [Concomitant]
     Dosage: 1 GRAM
     Route: 065
  17. REVLIMID [Suspect]
     Indication: MULTIPLE MYELOMA
     Dosage: 10 MILLIGRAM
     Route: 048
     Dates: start: 20100801
  18. MELPHALAN HYDROCHLORIDE [Concomitant]
     Indication: MULTIPLE MYELOMA
     Dosage: 200 MILLIGRAM/SQ. METER
     Route: 065
  19. ASCORBIC ACID [Concomitant]
     Dosage: 250 MILLIGRAM
     Route: 065
  20. LORAZEPAM [Concomitant]
     Indication: ANXIETY
     Dosage: .5 MILLIGRAM
     Route: 065
  21. LORAZEPAM [Concomitant]
  22. ACYCLOVIR [Concomitant]
     Route: 065
  23. MULTIPLE VITAMINS [Concomitant]
     Route: 065
  24. CODEINE-GUAIFENESIN [Concomitant]
     Dosage: 200-10MG/5ML
     Route: 065
  25. DIGOXIN [Concomitant]
     Dosage: .125 MILLIGRAM
     Route: 065

REACTIONS (2)
  - COMPLICATIONS OF BONE MARROW TRANSPLANT [None]
  - LUNG DISORDER [None]
